FAERS Safety Report 23969291 (Version 1)
Quarter: 2024Q2

REPORT INFORMATION
  Report Type: Spontaneous
  Country: NL (occurrence: NL)
  Receive Date: 20240612
  Receipt Date: 20240612
  Transmission Date: 20240715
  Serious: Yes (Hospitalization, Disabling, Other)
  Sender: FDA-Public Use
  Company Number: None

PATIENT
  Age: 36 Year
  Sex: Female
  Weight: 62 kg

DRUGS (3)
  1. DIAZEPAM [Suspect]
     Active Substance: DIAZEPAM
     Indication: Restlessness
     Dosage: 3 X PER DAY 1 TABLET, BRAND NAME NOT SPECIFIED
     Route: 065
     Dates: start: 19950202
  2. DULOXETINE [Suspect]
     Active Substance: DULOXETINE
     Indication: Depression
     Dosage: 60 MG ONCE A DAY / 30 MG TWICE A DAY, CAPSULE MSR 60MG / BRAND NAME NOT SPECIFIED
     Route: 065
     Dates: start: 20130101
  3. POLYETHYLENE GLYCOLS [Suspect]
     Active Substance: POLYETHYLENE GLYCOLS
     Indication: Constipation
     Dosage: 1 SACHET 3 TIMES A DAY, MACROGOL/SALTS CONC. FOR DRINK / BRAND NAME NOT SPECIFIED
     Route: 065
     Dates: start: 20230201

REACTIONS (5)
  - Migraine [Not Recovered/Not Resolved]
  - Hypertension [Not Recovered/Not Resolved]
  - Headache [Not Recovered/Not Resolved]
  - Maternal exposure during pregnancy [Unknown]
  - Muscle tightness [Not Recovered/Not Resolved]
